FAERS Safety Report 9861993 (Version 1)
Quarter: 2014Q1

REPORT INFORMATION
  Report Type: Spontaneous
  Country: GB (occurrence: GB)
  Receive Date: 20140203
  Receipt Date: 20140203
  Transmission Date: 20141002
  Serious: Yes (Death, Life-Threatening, Hospitalization)
  Sender: FDA-Public Use
  Company Number: GB-JNJFOC-20140118535

PATIENT
  Age: 65 Year
  Sex: Female

DRUGS (9)
  1. REMICADE [Suspect]
     Indication: CROHN^S DISEASE
     Dosage: DURATION: 1 DAY
     Route: 042
     Dates: start: 20130520, end: 20130520
  2. REMICADE [Suspect]
     Indication: CROHN^S DISEASE
     Dosage: DURATION: 1 DAY
     Route: 042
     Dates: start: 20130603, end: 20130603
  3. REMICADE [Suspect]
     Indication: CROHN^S DISEASE
     Dosage: DURATION: 1 DAY
     Route: 042
     Dates: start: 20130715, end: 20130715
  4. REMICADE [Suspect]
     Indication: CROHN^S DISEASE
     Dosage: DURATION: 1 DAY
     Route: 042
     Dates: start: 20130909, end: 20130909
  5. AZATHIOPRINE [Suspect]
     Indication: CROHN^S DISEASE
     Route: 065
     Dates: start: 201105, end: 201310
  6. AZATHIOPRINE [Suspect]
     Indication: CROHN^S DISEASE
     Route: 065
  7. CALCICHEW D3 [Concomitant]
     Route: 065
  8. FERROUS SULPHATE [Concomitant]
     Route: 065
  9. PREDNISOLONE [Concomitant]
     Route: 065

REACTIONS (1)
  - Acute myeloid leukaemia [Fatal]
